FAERS Safety Report 5890041-X (Version None)
Quarter: 2008Q3

REPORT INFORMATION
  Report Type: 
  Country: None (occurrence: None)
  Receive Date: 20080919
  Receipt Date: 20080908
  Transmission Date: 20090109
  Serious: Yes (Death, Other)
  Sender: FDA-Public Use
  Company Number: US-PFIZER INC-2008045779

PATIENT
  Age: 60 Year
  Sex: Male
  Weight: 86 kg

DRUGS (8)
  1. LYRICA [Suspect]
     Indication: NEUROPATHY PERIPHERAL
     Dates: start: 20051110, end: 20051205
  2. LYRICA [Suspect]
     Indication: PAIN IN EXTREMITY
  3. AMBIEN [Concomitant]
  4. RENAGEL [Concomitant]
  5. FLUOXETINE [Concomitant]
  6. RANITIDINE [Concomitant]
  7. NEPHROCAPS [Concomitant]
  8. SENSIPAR [Concomitant]

REACTIONS (2)
  - CORONARY ARTERY DISEASE [None]
  - MYOCARDIAL INFARCTION [None]
